FAERS Safety Report 21625654 (Version 1)
Quarter: 2022Q4

REPORT INFORMATION
  Report Type: Spontaneous
  Country: US (occurrence: None)
  Receive Date: 20221122
  Receipt Date: 20221122
  Transmission Date: 20230113
  Serious: No
  Sender: FDA-Public Use
  Company Number: US-ROCHE-3146063

PATIENT
  Age: 81 Year
  Sex: Female

DRUGS (4)
  1. HERCEPTIN [Suspect]
     Active Substance: TRASTUZUMAB
     Indication: Breast cancer
     Route: 041
  2. XELODA [Suspect]
     Active Substance: CAPECITABINE
     Indication: Breast cancer
     Route: 048
  3. TUKYSA [Suspect]
     Active Substance: TUCATINIB
     Indication: Breast cancer
     Route: 065
  4. PAXLOVID [Concomitant]
     Active Substance: NIRMATRELVIR\RITONAVIR
     Dates: start: 20220705

REACTIONS (8)
  - COVID-19 [Unknown]
  - Lethargy [Unknown]
  - Stomatitis [Unknown]
  - Pruritus [Unknown]
  - Peripheral swelling [Unknown]
  - Burning sensation [Unknown]
  - Cheilitis [Unknown]
  - Hypersomnia [Unknown]
